FAERS Safety Report 6475102-9 (Version None)
Quarter: 2009Q4

REPORT INFORMATION
  Report Type: 
  Country: None (occurrence: None)
  Receive Date: 20091204
  Receipt Date: 20090806
  Transmission Date: 20100525
  Serious: Yes (Other)
  Sender: FDA-Public Use
  Company Number: US-ELI_LILLY_AND_COMPANY-US200904001521

PATIENT
  Sex: Male
  Weight: 77.098 kg

DRUGS (4)
  1. ZYPREXA [Suspect]
     Indication: MENTAL DISORDER
     Dosage: 25 MG, UNKNOWN
     Dates: start: 19930101
  2. ZYPREXA [Suspect]
     Dosage: 25 MG, UNK
     Dates: start: 19960101, end: 20070101
  3. GEODON [Concomitant]
     Dates: start: 20030101
  4. MICROZIDE [Concomitant]
     Dates: start: 20030101, end: 20070101

REACTIONS (7)
  - DIABETES MELLITUS [None]
  - DIABETIC COMA [None]
  - HYPERGLYCAEMIA [None]
  - OFF LABEL USE [None]
  - OVERDOSE [None]
  - WEIGHT DECREASED [None]
  - WEIGHT INCREASED [None]
